FAERS Safety Report 18774406 (Version 1)
Quarter: 2021Q1

REPORT INFORMATION
  Report Type: Report from Study
  Country: US (occurrence: US)
  Receive Date: 20210122
  Receipt Date: 20210122
  Transmission Date: 20210419
  Serious: Yes (Other)
  Sender: FDA-Public Use
  Company Number: US-MYLANLABS-2021M1003918

PATIENT

DRUGS (5)
  1. CRIZOTINIB [Suspect]
     Active Substance: CRIZOTINIB
     Indication: NEOPLASM MALIGNANT
     Dosage: 165 MILLIGRAM/SQ. METER, BID ON DAYS 1?21 OF 21 DAY CYCLE (AT DOSE LEVEL 1)
     Route: 048
  2. TOPOTECAN [Suspect]
     Active Substance: TOPOTECAN HYDROCHLORIDE
     Indication: NEOPLASM MALIGNANT
     Dosage: UNK, Q21D 0.75 MG/M2/DOSE ON DAYS 1?5 OF 21 DAY CYCLE (ADMINISTERED AT DOSE LEVEL 1, 2, 3)
     Route: 042
  3. CRIZOTINIB [Suspect]
     Active Substance: CRIZOTINIB
     Dosage: 215 MILLIGRAM/SQ. METER, BID ON DAYS 1?21 OF 21 DAY CYCLE (AT DOSE LEVEL 2)
     Route: 048
  4. CRIZOTINIB [Suspect]
     Active Substance: CRIZOTINIB
     Dosage: 280 MILLIGRAM/SQ. METER, BID ON DAYS 1?21 OF 21 DAY CYCLE (AT DOSE LEVEL 3)
     Route: 048
  5. CYCLOPHOSPHAMIDE. [Suspect]
     Active Substance: CYCLOPHOSPHAMIDE
     Indication: NEOPLASM MALIGNANT
     Dosage: UNK, Q21D 250 MG/M2/DOSE ON DAYS 1?5 OF 21 DAY CYCLE (ADMINISTERED AT DOSE LEVEL 1,2,3)
     Route: 042

REACTIONS (1)
  - Hypotension [Unknown]
